FAERS Safety Report 6492918-3 (Version None)
Quarter: 2009Q4

REPORT INFORMATION
  Report Type: 
  Country: None (occurrence: None)
  Receive Date: 20091214
  Receipt Date: 20091204
  Transmission Date: 20100525
  Serious: Yes (Other)
  Sender: FDA-Public Use
  Company Number: PHHY2009ES53516

PATIENT
  Age: 77 Year
  Sex: Female

DRUGS (1)
  1. ZOMARIST [Suspect]
     Indication: DIABETES MELLITUS
     Dosage: 2 DF, BID
     Dates: start: 20091020, end: 20091107

REACTIONS (4)
  - ASTHENIA [None]
  - DECREASED APPETITE [None]
  - DISORIENTATION [None]
  - NAUSEA [None]
